FAERS Safety Report 9121807 (Version 1)
Quarter: 2012Q4

REPORT INFORMATION
  Report Type: Spontaneous
  Country: US (occurrence: None)
  Receive Date: 20121026
  Receipt Date: 20121026
  Transmission Date: 20130627
  Serious: No
  Sender: FDA-Public Use
  Company Number: 2012US-004350

PATIENT
  Age: 82 Year
  Sex: Female
  Weight: 69.2 kg

DRUGS (4)
  1. OMONTYS (PEGINESATIDE) SOLUTION FOR INJECTION [Suspect]
     Indication: NEPHROGENIC ANAEMIA
     Dosage: 5 mg, Intravenous
     Route: 042
     Dates: start: 20120827, end: 20120827
  2. HEPARIN (HEPARIN) [Concomitant]
  3. VENOFER (SACCHARATED IRON OXIDE) [Concomitant]
  4. ZEMPLAR (PARICALCITOL) [Concomitant]

REACTIONS (7)
  - Heart rate increased [None]
  - Chills [None]
  - Feeling abnormal [None]
  - Nausea [None]
  - Vomiting [None]
  - Hypersensitivity [None]
  - Pyrexia [None]
